FAERS Safety Report 16848062 (Version 1)
Quarter: 2019Q3

REPORT INFORMATION
  Report Type: Report from Study
  Country: None (occurrence: US)
  Receive Date: 20190925
  Receipt Date: 20190925
  Transmission Date: 20191005
  Serious: Yes (Other)
  Sender: FDA-Public Use
  Company Number: US-ABBVIE-19K-163-2929503-00

PATIENT
  Sex: Female

DRUGS (1)
  1. HUMIRA [Suspect]
     Active Substance: ADALIMUMAB
     Indication: HIDRADENITIS
     Route: 058
     Dates: start: 20190504, end: 20190728

REACTIONS (4)
  - Bronchitis [Recovered/Resolved]
  - Pain [Unknown]
  - Ovarian cyst ruptured [Not Recovered/Not Resolved]
  - Ovarian cancer [Unknown]
